FAERS Safety Report 21570964 (Version 1)
Quarter: 2022Q4

REPORT INFORMATION
  Report Type: Spontaneous
  Country: US (occurrence: US)
  Receive Date: 20221109
  Receipt Date: 20221109
  Transmission Date: 20230113
  Serious: No
  Sender: FDA-Public Use
  Company Number: US-ORGANON-O2211USA000525

PATIENT
  Age: 39 Year
  Sex: Female

DRUGS (4)
  1. FOLLISTIM AQ [Suspect]
     Active Substance: FOLLITROPIN
     Dosage: 350 UNITS, QD
     Route: 058
     Dates: start: 20220413
  2. FOLLISTIM AQ [Suspect]
     Active Substance: FOLLITROPIN
  3. CETROTIDE [Concomitant]
     Active Substance: CETRORELIX ACETATE
     Dosage: UNK, REPORTED AS ^CETROTIDE 0.25 MILLIGRAM SDV^
  4. PROGESTERONE [Concomitant]
     Active Substance: PROGESTERONE
     Dosage: UNK, REPORTED AS ^PROGESTERONE 50 MG/ML MDV 10 ML^

REACTIONS (1)
  - Product dose omission issue [Unknown]

NARRATIVE: CASE EVENT DATE: 20221102
